FAERS Safety Report 5370684-2 (Version None)
Quarter: 2007Q2

REPORT INFORMATION
  Report Type: 
  Country: None (occurrence: None)
  Receive Date: 20070626
  Receipt Date: 20070618
  Transmission Date: 20071010
  Serious: No
  Sender: FDA-Public Use
  Company Number: DE-SANOFI-SYNTHELABO-A01200703989

PATIENT
  Sex: Male
  Weight: 83 kg

DRUGS (4)
  1. SIMVASTATIN [Concomitant]
     Indication: HYPERLIPIDAEMIA
     Route: 048
  2. RAMIPRIL [Concomitant]
     Indication: HYPERTENSION
     Route: 048
  3. BELOC ZOC [Concomitant]
     Indication: HYPERTENSION
     Route: 048
  4. ISCOVER [Suspect]
     Indication: DRUG USE FOR UNKNOWN INDICATION
     Dosage: UNK
     Route: 048

REACTIONS (1)
  - VENTRICULAR EXTRASYSTOLES [None]
